FAERS Safety Report 5615966-1 (Version None)
Quarter: 2008Q1

REPORT INFORMATION
  Report Type: 
  Country: None (occurrence: None)
  Receive Date: 20080206
  Receipt Date: 20080131
  Transmission Date: 20080703
  Serious: Yes (Hospitalization)
  Sender: FDA-Public Use
  Company Number: ZW-BOEHRINGER INGELHEIM GMBH, GERMANY-2008-BP-01535BP

PATIENT
  Age: 34 Month
  Sex: Female
  Weight: 11 kg

DRUGS (3)
  1. VIRAMUNE [Suspect]
     Indication: HIV INFECTION
     Route: 048
     Dates: start: 20070614
  2. ZIDOVUDINE [Suspect]
     Indication: HIV INFECTION
     Route: 048
     Dates: start: 20070614
  3. LAMIVUDINE [Suspect]
     Indication: HIV INFECTION
     Route: 048
     Dates: start: 20070614

REACTIONS (2)
  - DIARRHOEA [None]
  - HYPOKALAEMIA [None]
